FAERS Safety Report 8241596-1 (Version None)
Quarter: 2012Q1

REPORT INFORMATION
  Report Type: 
  Country: None (occurrence: None)
  Receive Date: 20120328
  Receipt Date: 20120323
  Transmission Date: 20120608
  Serious: Yes (Other)
  Sender: FDA-Public Use
  Company Number: CHPA2012CA004748

PATIENT
  Age: 30 Year
  Sex: Female

DRUGS (1)
  1. OTRIVIN [Suspect]
     Indication: SINUS CONGESTION
     Dosage: UNK, 5 TIMES PER DAY
     Route: 045
     Dates: start: 20100101

REACTIONS (2)
  - DRUG DEPENDENCE [None]
  - INCORRECT DRUG ADMINISTRATION DURATION [None]
